FAERS Safety Report 10341814 (Version 2)
Quarter: 2014Q3

REPORT INFORMATION
  Report Type: Spontaneous
  Country: DE (occurrence: DE)
  Receive Date: 20140725
  Receipt Date: 20140808
  Transmission Date: 20150326
  Serious: Yes (Hospitalization, Other)
  Sender: FDA-Public Use
  Company Number: DE-RANBAXY-2014RR-83696

PATIENT
  Age: 21 Year
  Sex: Female

DRUGS (6)
  1. CIMETIDINE [Suspect]
     Active Substance: CIMETIDINE
     Indication: PRODUCT USED FOR UNKNOWN INDICATION
     Dosage: UNK
     Route: 065
  2. FEXOFENADINE [Suspect]
     Active Substance: FEXOFENADINE\FEXOFENADINE HYDROCHLORIDE
     Indication: ALLERGY TEST
     Dosage: UNK
     Route: 048
  3. CETIRIZINE [Suspect]
     Active Substance: CETIRIZINE HYDROCHLORIDE
     Indication: PRODUCT USED FOR UNKNOWN INDICATION
     Dosage: UNK
     Route: 048
  4. CETIRIZINE [Suspect]
     Active Substance: CETIRIZINE HYDROCHLORIDE
     Indication: ALLERGY TEST
     Dosage: UNK
     Route: 048
  5. RUPATADINE [Suspect]
     Active Substance: RUPATADINE
     Indication: ALLERGY TEST
     Dosage: UNK
     Route: 048
  6. DIMETINDEN [Suspect]
     Active Substance: DIMETHINDENE
     Indication: PRODUCT USED FOR UNKNOWN INDICATION
     Dosage: UNK
     Route: 065

REACTIONS (1)
  - Urticaria [Unknown]
